FAERS Safety Report 8394072-X (Version None)
Quarter: 2012Q1

REPORT INFORMATION
  Report Type: 
  Country: None (occurrence: None)
  Receive Date: 20120323
  Receipt Date: 20110823
  Transmission Date: 20120608
  Serious: Yes (Disabling)
  Sender: FDA-Public Use
  Company Number: 163-21880-11050834

PATIENT
  Age: 80 Year
  Sex: Male

DRUGS (3)
  1. MELPHALAN HYDROCHLORIDE [Concomitant]
  2. REVLIMID [Suspect]
     Indication: MULTIPLE MYELOMA
     Dosage: 25 MG, DAILY X 21, PO
     Route: 048
     Dates: start: 20110425, end: 20110523
  3. PREDNISONE [Concomitant]

REACTIONS (2)
  - NAUSEA [None]
  - SOMNOLENCE [None]
